FAERS Safety Report 9543664 (Version 3)
Quarter: 2013Q4

REPORT INFORMATION
  Report Type: Spontaneous
  Country: US (occurrence: US)
  Receive Date: 20130923
  Receipt Date: 20131106
  Transmission Date: 20140711
  Serious: Yes (Other)
  Sender: FDA-Public Use
  Company Number: US-TEVA-433305USA

PATIENT
  Age: 35 Year
  Sex: Female
  Weight: 93.98 kg

DRUGS (3)
  1. PARAGARD 380A [Suspect]
     Indication: CONTRACEPTION
     Route: 015
     Dates: start: 200810, end: 20130912
  2. AMLODIPINE [Concomitant]
     Indication: HYPERTENSION
     Dosage: UNIT 10; ONCE
     Route: 048
  3. LORATADINE [Concomitant]
     Indication: SEASONAL ALLERGY
     Dosage: UNIT 10; ONCE
     Route: 048

REACTIONS (3)
  - Embedded device [Not Recovered/Not Resolved]
  - Medical device complication [Not Recovered/Not Resolved]
  - Device expulsion [Not Recovered/Not Resolved]
